FAERS Safety Report 7497492-0 (Version None)
Quarter: 2011Q2

REPORT INFORMATION
  Report Type: 
  Country: None (occurrence: None)
  Receive Date: 20110523
  Receipt Date: 20110510
  Transmission Date: 20111010
  Serious: Yes (Hospitalization)
  Sender: FDA-Public Use
  Company Number: US-UCBSA-013508

PATIENT
  Age: 64 Year
  Sex: Male
  Weight: 99.3 kg

DRUGS (17)
  1. ZAROXOLYN [Suspect]
     Indication: CARDIAC FAILURE CONGESTIVE
     Route: 048
     Dates: start: 20100304, end: 20100311
  2. METFORMIN [Concomitant]
  3. ACCUPRIL [Concomitant]
     Indication: HYPERTENSION
     Route: 048
     Dates: start: 20030813
  4. NEXIUM [Concomitant]
     Dates: start: 20100304, end: 20100308
  5. K-DUR [Concomitant]
     Indication: MINERAL SUPPLEMENTATION
     Route: 048
     Dates: start: 20030813, end: 20100311
  6. CELECOXIB; IBRUPHEN; NAPROXEN;PLACEBO [Suspect]
     Indication: OSTEOARTHRITIS
     Dates: start: 20100304
  7. RANITIDINE HYDROCHLORIDE [Concomitant]
  8. PLAVIX [Concomitant]
     Indication: CARDIOVASCULAR DISORDER
     Route: 048
     Dates: start: 20030813
  9. NORVASC [Concomitant]
  10. CELECOXIB; IBRUPHEN; NAPROXEN;PLACEBO [Suspect]
     Dates: start: 20100428
  11. METOPROLOL SUCCINATE [Concomitant]
     Indication: HYPERTENSION
     Route: 048
     Dates: start: 20030813
  12. NIACIN [Concomitant]
  13. LASIX [Suspect]
     Indication: CARDIAC FAILURE CONGESTIVE
     Route: 048
     Dates: start: 20030813, end: 20100311
  14. CELECOXIB; IBRUPHEN; NAPROXEN;PLACEBO [Suspect]
     Indication: RHEUMATOID ARTHRITIS
     Dates: start: 20100304
  15. CELECOXIB; IBRUPHEN; NAPROXEN;PLACEBO [Suspect]
     Dates: start: 20100428
  16. TERAZOSIN HCL [Concomitant]
  17. RANEXA [Concomitant]
     Indication: ANGINA PECTORIS
     Route: 048
     Dates: start: 20080308

REACTIONS (3)
  - FEELING ABNORMAL [None]
  - HYPOKALAEMIA [None]
  - DEHYDRATION [None]
